FAERS Safety Report 18254298 (Version 3)
Quarter: 2020Q4

REPORT INFORMATION
  Report Type: Spontaneous
  Country: DE (occurrence: DE)
  Receive Date: 20200911
  Receipt Date: 20201120
  Transmission Date: 20210113
  Serious: Yes (Hospitalization)
  Sender: FDA-Public Use
  Company Number: DE-ROCHE-2672261

PATIENT
  Age: 72 Year
  Sex: Female
  Weight: 70 kg

DRUGS (6)
  1. BENDAMUSTINE [Suspect]
     Active Substance: BENDAMUSTINE
     Indication: DIFFUSE LARGE B-CELL LYMPHOMA
     Route: 042
     Dates: start: 20200831, end: 20200901
  2. POLIVY [Suspect]
     Active Substance: POLATUZUMAB VEDOTIN-PIIQ
     Indication: DIFFUSE LARGE B-CELL LYMPHOMA
     Dosage: FIRST INFUSION
     Route: 042
     Dates: start: 20200831, end: 20200831
  3. PARACETAMOL [Concomitant]
     Active Substance: ACETAMINOPHEN
     Route: 048
     Dates: start: 20200831, end: 20200831
  4. DEXAMETHASONE. [Concomitant]
     Active Substance: DEXAMETHASONE
     Dosage: TOGETHER WITH DIMETINDEN
     Route: 042
     Dates: start: 20200831, end: 20200831
  5. RITUXIMAB. [Suspect]
     Active Substance: RITUXIMAB
     Indication: DIFFUSE LARGE B-CELL LYMPHOMA
     Route: 041
     Dates: start: 20200831
  6. DIMETINDENE [Concomitant]
     Active Substance: DIMETHINDENE
     Route: 042
     Dates: start: 20200831, end: 20200831

REACTIONS (1)
  - Bronchospasm [Recovered/Resolved]

NARRATIVE: CASE EVENT DATE: 20200901
